FAERS Safety Report 11412273 (Version 1)
Quarter: 2015Q3

REPORT INFORMATION
  Report Type: Spontaneous
  Country: US (occurrence: US)
  Receive Date: 20150824
  Receipt Date: 20150824
  Transmission Date: 20151125
  Serious: No
  Sender: FDA-Public Use
  Company Number: US-JNJFOC-20150501386

PATIENT
  Age: 51 Year
  Sex: Female
  Weight: 53.07 kg

DRUGS (2)
  1. WOMENS ROGAINE [Suspect]
     Active Substance: MINOXIDIL
     Indication: ALOPECIA
     Dosage: 1 ML OR SOMETIMES 1/2 ML????USING FOR ABOUT 16 YEARS
     Route: 061
  2. WOMENS ROGAINE [Suspect]
     Active Substance: MINOXIDIL
     Route: 061

REACTIONS (3)
  - Drug dose omission [Unknown]
  - Incorrect dose administered [Unknown]
  - Off label use [Unknown]
